FAERS Safety Report 9465085 (Version 4)
Quarter: 2014Q3

REPORT INFORMATION
  Report Type: Spontaneous
  Country: US (occurrence: US)
  Receive Date: 20130819
  Receipt Date: 20140729
  Transmission Date: 20150326
  Serious: Yes (Hospitalization, Other)
  Sender: FDA-Public Use
  Company Number: US-009507513-1308USA008355

PATIENT
  Sex: Female
  Weight: 72.56 kg

DRUGS (1)
  1. NUVARING [Suspect]
     Active Substance: ETHINYL ESTRADIOL\ETONOGESTREL
     Indication: CONTRACEPTION
     Dosage: UNK
     Route: 067
     Dates: start: 2004, end: 20110909

REACTIONS (16)
  - Pain in extremity [Unknown]
  - Convulsion [Unknown]
  - Vitamin D deficiency [Unknown]
  - Peripheral swelling [Unknown]
  - Leukocytosis [Unknown]
  - Pulmonary embolism [Recovered/Resolved]
  - Foot deformity [Unknown]
  - Upper respiratory tract infection [Unknown]
  - Hypokalaemia [Unknown]
  - Joint dislocation [Unknown]
  - Tendon injury [Unknown]
  - Haemangioma of liver [Unknown]
  - Renal cyst [Unknown]
  - Knee operation [Unknown]
  - Hyperglycaemia [Unknown]
  - Deep vein thrombosis [Recovering/Resolving]

NARRATIVE: CASE EVENT DATE: 2011
